FAERS Safety Report 8187826-6 (Version None)
Quarter: 2012Q1

REPORT INFORMATION
  Report Type: 
  Country: None (occurrence: None)
  Receive Date: 20120306
  Receipt Date: 20120229
  Transmission Date: 20120608
  Serious: Yes (Other)
  Sender: FDA-Public Use
  Company Number: US-TEVA-323793USA

PATIENT
  Sex: Female
  Weight: 36.592 kg

DRUGS (6)
  1. RITUXIMAB [Suspect]
     Indication: B-CELL LYMPHOMA
     Dosage: 700-730 MG
     Route: 042
     Dates: start: 20101021, end: 20110317
  2. MELOXICAM [Concomitant]
  3. SITAGLIPTIN PHOSPHATE [Concomitant]
  4. TREANDA [Suspect]
     Indication: B-CELL LYMPHOMA
     Dosage: 168-175 MG
     Route: 042
     Dates: start: 20101028, end: 20110121
  5. IBRITUMOMAB TIUXETAN [Suspect]
     Indication: B-CELL LYMPHOMA
     Dosage: 32 MCI
     Route: 042
     Dates: start: 20110317, end: 20110317
  6. GLYNASE MF [Concomitant]

REACTIONS (1)
  - CHRONIC MYELOID LEUKAEMIA [None]
